FAERS Safety Report 7820377-4 (Version None)
Quarter: 2011Q4

REPORT INFORMATION
  Report Type: 
  Country: None (occurrence: None)
  Receive Date: 20111018
  Receipt Date: 20111004
  Transmission Date: 20120403
  Serious: Yes (Hospitalization)
  Sender: FDA-Public Use
  Company Number: CH-ROCHE-803081

PATIENT
  Sex: Male
  Weight: 96.2 kg

DRUGS (1)
  1. MIRCERA [Suspect]
     Indication: NEPHROGENIC ANAEMIA
     Route: 058

REACTIONS (3)
  - INGUINAL HERNIA, OBSTRUCTIVE [None]
  - DEVICE OCCLUSION [None]
  - HYDROCELE [None]
